FAERS Safety Report 6190794-X (Version None)
Quarter: 2009Q2

REPORT INFORMATION
  Report Type: 
  Country: None (occurrence: None)
  Receive Date: 20090513
  Receipt Date: 20090513
  Transmission Date: 20091009
  Serious: Yes (Other)
  Sender: FDA-Public Use
  Company Number: None

PATIENT
  Age: 39 Year
  Sex: Female
  Weight: 91.6266 kg

DRUGS (2)
  1. SINGULAIR [Suspect]
     Indication: ASTHMA
     Dosage: 1 PILL -10 MG- 1X PER DAY PO
     Route: 048
     Dates: start: 20090502, end: 20090512
  2. SINGULAIR [Suspect]
     Indication: MULTIPLE ALLERGIES
     Dosage: 1 PILL -10 MG- 1X PER DAY PO
     Route: 048
     Dates: start: 20090502, end: 20090512

REACTIONS (12)
  - ABNORMAL BEHAVIOUR [None]
  - ABNORMAL DREAMS [None]
  - ANGINA PECTORIS [None]
  - ANXIETY [None]
  - CONFUSIONAL STATE [None]
  - DIZZINESS [None]
  - MIDDLE INSOMNIA [None]
  - MOOD ALTERED [None]
  - MYALGIA [None]
  - PALPITATIONS [None]
  - TOOTHACHE [None]
  - VISION BLURRED [None]
